FAERS Safety Report 8851951 (Version 1)
Quarter: 2012Q4

REPORT INFORMATION
  Report Type: 
  Country: AU (occurrence: AU)
  Receive Date: 20121022
  Receipt Date: 20121022
  Transmission Date: 20130627
  Serious: Yes (Hospitalization)
  Sender: FDA-Public Use
  Company Number: AU-ELI_LILLY_AND_COMPANY-AU201210004036

PATIENT
  Age: 7 Year
  Sex: Male

DRUGS (4)
  1. FLUOXETINE [Suspect]
     Dosage: 20 mg, qd
     Route: 048
     Dates: start: 20120919, end: 20120930
  2. FLUOXETINE [Suspect]
     Indication: OBSESSIVE-COMPULSIVE DISORDER
     Dosage: 5 mg, qd
     Route: 048
     Dates: start: 20120826, end: 20120902
  3. FLUOXETINE [Suspect]
     Dosage: 10 mg, qd
     Route: 048
     Dates: start: 20120903, end: 20120910
  4. FLUOXETINE [Suspect]
     Dosage: 15 mg, qd
     Route: 048
     Dates: start: 20120911, end: 20120918

REACTIONS (5)
  - Pyrexia [Recovering/Resolving]
  - Feeling of body temperature change [Recovering/Resolving]
  - Gait disturbance [Recovering/Resolving]
  - Joint swelling [Recovering/Resolving]
  - Rash [Recovering/Resolving]
